FAERS Safety Report 8568900-9 (Version None)
Quarter: 2012Q3

REPORT INFORMATION
  Report Type: 
  Country: None (occurrence: None)
  Receive Date: 20120803
  Receipt Date: 20120418
  Transmission Date: 20120928
  Serious: No
  Sender: FDA-Public Use
  Company Number: US-ABBOTT-12P-163-0926796-00

PATIENT
  Sex: Male
  Weight: 114.41 kg

DRUGS (3)
  1. ASPIRIN [Concomitant]
     Indication: PRODUCT USED FOR UNKNOWN INDICATION
     Dosage: 30 MIN PRIOR TO NIASPAN
     Route: 048
  2. TRICOR [Concomitant]
     Indication: PRODUCT USED FOR UNKNOWN INDICATION
     Route: 048
  3. NIASPAN [Suspect]
     Indication: BLOOD TRIGLYCERIDES INCREASED
     Dosage: 1000 MG 2 PO QHS
     Route: 048
     Dates: start: 20020101

REACTIONS (8)
  - FLUSHING [None]
  - SKIN BURNING SENSATION [None]
  - PRURITUS [None]
  - FEELING HOT [None]
  - PARAESTHESIA [None]
  - SLEEP APNOEA SYNDROME [None]
  - DIZZINESS [None]
  - ERYTHEMA [None]
